FAERS Safety Report 13639068 (Version 1)
Quarter: 2017Q2

REPORT INFORMATION
  Report Type: Spontaneous
  Country: FR (occurrence: FR)
  Receive Date: 20170609
  Receipt Date: 20170609
  Transmission Date: 20170830
  Serious: Yes (Hospitalization)
  Sender: FDA-Public Use
  Company Number: FR-LUNDBECK-DKLU2032634

PATIENT
  Age: 45 Year
  Sex: Male

DRUGS (6)
  1. GARDENAL [Suspect]
     Active Substance: PHENOBARBITAL
     Indication: WRONG PATIENT RECEIVED MEDICATION
     Route: 048
     Dates: start: 20170516, end: 20170516
  2. HAVLANE [Suspect]
     Active Substance: LOPRAZOLAM
     Indication: WRONG PATIENT RECEIVED MEDICATION
     Route: 048
     Dates: start: 20170516, end: 20170516
  3. NORSET [Suspect]
     Active Substance: MIRTAZAPINE
     Indication: WRONG PATIENT RECEIVED MEDICATION
     Route: 048
     Dates: start: 20170516, end: 20170516
  4. THERALENE [Suspect]
     Active Substance: TRIMEPRAZINE
     Indication: WRONG PATIENT RECEIVED MEDICATION
     Route: 048
     Dates: start: 20170516, end: 20170516
  5. URBANYL [Suspect]
     Active Substance: CLOBAZAM
     Indication: WRONG PATIENT RECEIVED MEDICATION
     Route: 048
     Dates: start: 20170516, end: 20170516
  6. DEPAKINE CHRONO [Suspect]
     Active Substance: VALPROATE SODIUM
     Indication: WRONG PATIENT RECEIVED MEDICATION
     Route: 048
     Dates: start: 20170516, end: 20170516

REACTIONS (8)
  - Tachycardia [Recovered/Resolved]
  - Fall [Recovered/Resolved]
  - Disturbance in attention [Recovered/Resolved]
  - Head injury [Recovered/Resolved]
  - Somnolence [Recovered/Resolved]
  - Hypophagia [Recovered/Resolved]
  - Wrong patient received medication [Recovered/Resolved]
  - Drug dispensing error [Recovered/Resolved]

NARRATIVE: CASE EVENT DATE: 20170516
